FAERS Safety Report 25764851 (Version 1)
Quarter: 2025Q3

REPORT INFORMATION
  Report Type: Spontaneous
  Country: US (occurrence: US)
  Receive Date: 20250905
  Receipt Date: 20250905
  Transmission Date: 20251021
  Serious: No
  Sender: GE HEALTHCARE
  Company Number: US-GE HEALTHCARE-2025CSU012289

PATIENT
  Age: 72 Year
  Sex: Female

DRUGS (2)
  1. VISIPAQUE [Suspect]
     Active Substance: IODIXANOL
     Indication: Skin test
     Route: 023
  2. ISOVUE [Concomitant]
     Active Substance: IOPAMIDOL
     Indication: Skin test
     Route: 023

REACTIONS (1)
  - Skin test positive [Unknown]
